FAERS Safety Report 6907216-0 (Version None)
Quarter: 2010Q3

REPORT INFORMATION
  Report Type: 
  Country: None (occurrence: None)
  Receive Date: 20100804
  Receipt Date: 20100728
  Transmission Date: 20110219
  Serious: Yes (Hospitalization, Other)
  Sender: FDA-Public Use
  Company Number: US-AMGEN-QUU405741

PATIENT
  Sex: Male
  Weight: 65.4 kg

DRUGS (9)
  1. NPLATE [Suspect]
     Indication: IDIOPATHIC THROMBOCYTOPENIC PURPURA
     Route: 058
     Dates: start: 20100222, end: 20100426
  2. CORTICOSTEROIDS [Concomitant]
     Dates: start: 20100208
  3. IMMU-G [Concomitant]
     Dates: start: 20100208
  4. IRON [Concomitant]
  5. LASIX [Concomitant]
  6. NORVASC [Concomitant]
  7. PEPCID [Concomitant]
  8. PREDNISONE [Concomitant]
     Dates: start: 20080201
  9. NYSTATIN [Concomitant]

REACTIONS (4)
  - ANAEMIA [None]
  - GASTRIC ULCER HAEMORRHAGE [None]
  - GASTRITIS [None]
  - THERAPEUTIC RESPONSE DECREASED [None]
